FAERS Safety Report 18315449 (Version 2)
Quarter: 2022Q3

REPORT INFORMATION
  Report Type: Other
  Country: CA (occurrence: CA)
  Receive Date: 20200926
  Receipt Date: 20220820
  Transmission Date: 20221027
  Serious: Yes (Other)
  Sender: FDA-Public Use
  Company Number: CA-CELLTRION INC.-2020CA027255

PATIENT

DRUGS (5)
  1. RITUXIMAB [Suspect]
     Active Substance: RITUXIMAB
     Indication: Granulomatosis with polyangiitis
     Dosage: 1 EVERY 6 MONTHS
     Route: 041
  2. RITUXIMAB [Suspect]
     Active Substance: RITUXIMAB
     Indication: Anti-neutrophil cytoplasmic antibody positive vasculitis
     Dosage: 500.0 MILLIGRAM
     Route: 041
  3. BACTRIM [Concomitant]
     Active Substance: SULFAMETHOXAZOLE\TRIMETHOPRIM
     Dosage: 3 EVERY 1 WEEKS
     Route: 065
  4. FOLIC ACID [Concomitant]
     Active Substance: FOLIC ACID
     Dosage: 10.0 MILLIGRAM, 1 EVERY 1 DAYS
     Route: 065
  5. SERTRALINE [Concomitant]
     Active Substance: SERTRALINE HYDROCHLORIDE
     Dosage: UNK

REACTIONS (19)
  - Amenorrhoea [Recovered/Resolved]
  - Cataract subcapsular [Recovered/Resolved]
  - Coeliac disease [Recovered/Resolved]
  - Hyperhomocysteinaemia [Recovered/Resolved]
  - Magnetic resonance imaging head abnormal [Recovered/Resolved]
  - Mastocytoma [Recovered/Resolved]
  - Heavy menstrual bleeding [Recovered/Resolved]
  - Blood folate decreased [Recovered/Resolved]
  - Blood homocysteine increased [Recovered/Resolved]
  - Protein urine present [Recovered/Resolved]
  - Productive cough [Recovered/Resolved]
  - Depression [Recovered/Resolved]
  - Dyspnoea exertional [Recovered/Resolved]
  - Arthralgia [Recovered/Resolved]
  - Fatigue [Recovered/Resolved]
  - Headache [Recovered/Resolved]
  - Nasal congestion [Recovered/Resolved]
  - Off label use [Recovered/Resolved]
  - Off label use [Unknown]
